FAERS Safety Report 6792227-9 (Version None)
Quarter: 2010Q2

REPORT INFORMATION
  Report Type: 
  Country: None (occurrence: None)
  Receive Date: 20100624
  Receipt Date: 20100614
  Transmission Date: 20101027
  Serious: Yes (Hospitalization)
  Sender: FDA-Public Use
  Company Number: FR-GENENTECH-303171

PATIENT
  Sex: Male

DRUGS (9)
  1. RITUXIMAB [Suspect]
     Indication: MANTLE CELL LYMPHOMA
     Dosage: UNK
     Route: 065
     Dates: start: 20100302
  2. RITUXIMAB [Suspect]
     Dosage: UNK
     Route: 065
     Dates: start: 20100511
  3. CYTARABINE [Suspect]
     Indication: MANTLE CELL LYMPHOMA
     Dosage: UNK
     Route: 042
     Dates: start: 20100302
  4. CYTARABINE [Suspect]
     Dosage: UNK
     Route: 042
     Dates: start: 20100511
  5. CYTARABINE [Suspect]
     Dosage: UNK
     Route: 042
     Dates: start: 20100512
  6. CISPLATIN [Suspect]
     Indication: MANTLE CELL LYMPHOMA
     Dosage: UNK
     Route: 042
     Dates: start: 20100302
  7. CISPLATIN [Suspect]
     Dosage: UNK
     Route: 042
     Dates: start: 20100511
  8. DEXAMETHASONE [Suspect]
     Indication: MANTLE CELL LYMPHOMA
     Dosage: UNK
     Route: 065
     Dates: start: 20100302
  9. DEXAMETHASONE [Suspect]
     Dosage: UNK
     Route: 065
     Dates: start: 20100511, end: 20100514

REACTIONS (1)
  - FEBRILE BONE MARROW APLASIA [None]
